FAERS Safety Report 9265386 (Version 1)
Quarter: 2013Q2

REPORT INFORMATION
  Report Type: Spontaneous
  Country: JP (occurrence: JP)
  Receive Date: 20130501
  Receipt Date: 20130501
  Transmission Date: 20140414
  Serious: Yes (Other)
  Sender: FDA-Public Use
  Company Number: PHHY2013JP042175

PATIENT
  Age: 5 Year
  Sex: Female

DRUGS (1)
  1. ENALAPRIL [Suspect]

REACTIONS (8)
  - Gouty tophus [Recovering/Resolving]
  - Oedema [Unknown]
  - Hepatosplenomegaly [Unknown]
  - Ascites [Unknown]
  - Hyperuricaemia [Recovering/Resolving]
  - Pathological fracture [Unknown]
  - Bone disorder [Unknown]
  - Renal impairment [Recovering/Resolving]
